FAERS Safety Report 5456205-4 (Version None)
Quarter: 2007Q3

REPORT INFORMATION
  Report Type: 
  Country: None (occurrence: None)
  Receive Date: 20070918
  Receipt Date: 20061109
  Transmission Date: 20080115
  Serious: Yes (Hospitalization)
  Sender: FDA-Public Use
  Company Number: US-ASTRAZENECA-2006UW22760

PATIENT
  Age: 43 Year
  Sex: Female

DRUGS (4)
  1. SEROQUEL [Suspect]
     Indication: SCHIZOPHRENIA
     Route: 048
     Dates: start: 20060301, end: 20060101
  2. AMBIEN [Suspect]
     Route: 048
  3. RISPERDAL [Concomitant]
     Indication: SCHIZOAFFECTIVE DISORDER
     Route: 048
  4. CYMBALTA [Concomitant]
     Indication: SCHIZOAFFECTIVE DISORDER
     Route: 048

REACTIONS (1)
  - PANCREATITIS [None]
